FAERS Safety Report 18229174 (Version 1)
Quarter: 2020Q3

REPORT INFORMATION
  Report Type: Spontaneous
  Country: US (occurrence: US)
  Receive Date: 20200903
  Receipt Date: 20200903
  Transmission Date: 20201103
  Serious: Yes (Other)
  Sender: FDA-Public Use
  Company Number: US-PFIZER INC-2020339273

PATIENT
  Age: 7 Decade

DRUGS (1)
  1. ATORVASTATIN CALCIUM. [Suspect]
     Active Substance: ATORVASTATIN CALCIUM
     Indication: HYPERLIPIDAEMIA
     Dosage: UNK (HAS BEEN TAKING ATORVASTATIN FOREVER)

REACTIONS (2)
  - Coeliac disease [Unknown]
  - Dyspepsia [Not Recovered/Not Resolved]
